FAERS Safety Report 4865253-4 (Version None)
Quarter: 2005Q4

REPORT INFORMATION
  Report Type: 
  Country: None (occurrence: None)
  Receive Date: 20051223
  Receipt Date: 20051221
  Transmission Date: 20060501
  Serious: Yes (Hospitalization)
  Sender: FDA-Public Use
  Company Number: DE-GLAXOSMITHKLINE-D0048290A

PATIENT

DRUGS (1)
  1. AVANDIA [Suspect]
     Dosage: 8MG THREE TIMES PER DAY
     Route: 048

REACTIONS (3)
  - ASCITES [None]
  - CARDIAC FAILURE [None]
  - OEDEMA [None]
